FAERS Safety Report 5984930-5 (Version None)
Quarter: 2008Q4

REPORT INFORMATION
  Report Type: 
  Country: None (occurrence: None)
  Receive Date: 20081202
  Receipt Date: 20081119
  Transmission Date: 20090506
  Serious: Yes (Hospitalization)
  Sender: FDA-Public Use
  Company Number: WAES 0811USA03102

PATIENT
  Age: 55 Year
  Sex: Female

DRUGS (9)
  1. DECADRON [Suspect]
     Indication: NON-SMALL CELL LUNG CANCER
     Dosage: 25 MG/BID
     Dates: start: 20080717
  2. PEMETREXED DISODIUM [Suspect]
     Indication: NON-SMALL CELL LUNG CANCER
     Dosage: 500 MG/M[2]/DAILY
     Route: 042
     Dates: start: 20080724
  3. AUGMENTIN [Concomitant]
  4. PEPTO-BISMOL [Concomitant]
  5. ZOFRAN [Concomitant]
  6. CLARITHROMYCIN [Concomitant]
  7. CYANOCOBALAMIN [Concomitant]
  8. OMEPRAZOLE [Concomitant]
  9. FOLIC ACID [Suspect]
     Indication: NON-SMALL CELL LUNG CANCER
     Dosage: 400 MICROGM/DAILY
     Dates: start: 20080717

REACTIONS (14)
  - ABDOMINAL DISTENSION [None]
  - CONSTIPATION [None]
  - DEPRESSION [None]
  - FLATULENCE [None]
  - GASTROINTESTINAL HYPOMOTILITY [None]
  - HEPATIC PAIN [None]
  - HEPATOMEGALY [None]
  - HYPOTHERMIA [None]
  - LEUKOPENIA [None]
  - NAUSEA [None]
  - NEUTROPENIA [None]
  - PHARYNGITIS [None]
  - PNEUMONIA [None]
  - VOMITING [None]
